FAERS Safety Report 7308323-3 (Version None)
Quarter: 2011Q1

REPORT INFORMATION
  Report Type: 
  Country: None (occurrence: None)
  Receive Date: 20110223
  Receipt Date: 20110216
  Transmission Date: 20110831
  Serious: Yes (Hospitalization, Congenital Anomaly)
  Sender: FDA-Public Use
  Company Number: A0914908A

PATIENT
  Sex: Male
  Weight: 2.1 kg

DRUGS (1)
  1. PAXIL CR [Suspect]
     Indication: ANXIETY
     Dosage: 25MG PER DAY
     Route: 064

REACTIONS (6)
  - VENTRICULAR SEPTAL DEFECT [None]
  - HIP DYSPLASIA [None]
  - DRUG EXPOSURE DURING PREGNANCY [None]
  - ATRIAL SEPTAL DEFECT [None]
  - CONGENITAL CENTRAL NERVOUS SYSTEM ANOMALY [None]
  - RENAL IMPAIRMENT [None]
